FAERS Safety Report 21705876 (Version 1)
Quarter: 2022Q4

REPORT INFORMATION
  Report Type: Spontaneous
  Country: US (occurrence: None)
  Receive Date: 20221208
  Receipt Date: 20221208
  Transmission Date: 20230113
  Serious: Yes (Hospitalization)
  Sender: FDA-Public Use
  Company Number: None

PATIENT
  Age: 71 Year
  Sex: Male
  Weight: 94.8 kg

DRUGS (1)
  1. ZANUBRUTINIB [Suspect]
     Active Substance: ZANUBRUTINIB
     Indication: Immunoglobulin G4 related disease
     Dosage: FREQUENCY : TWICE A DAY;?
     Route: 048
     Dates: start: 20220803, end: 20220914

REACTIONS (5)
  - Acute kidney injury [None]
  - COVID-19 [None]
  - Diarrhoea [None]
  - Hypernatraemia [None]
  - Atrial fibrillation [None]

NARRATIVE: CASE EVENT DATE: 20221127
